FAERS Safety Report 5157765-3 (Version None)
Quarter: 2006Q4

REPORT INFORMATION
  Report Type: 
  Country: None (occurrence: None)
  Receive Date: 20061116
  Receipt Date: 20061109
  Transmission Date: 20070319
  Serious: Yes (Hospitalization)
  Sender: FDA-Public Use
  Company Number: 2006SP005995

PATIENT
  Age: 50 Year
  Sex: Female
  Weight: 63.18 kg

DRUGS (5)
  1. TEMODAR [Suspect]
     Indication: METASTASES TO CENTRAL NERVOUS SYSTEM
     Dosage: SEE IMAGE, PO
     Route: 048
     Dates: end: 20061028
  2. TEMODAR [Suspect]
     Indication: NON-SMALL CELL LUNG CANCER
     Dosage: SEE IMAGE, PO
     Route: 048
     Dates: end: 20061028
  3. TEMODAR [Suspect]
     Indication: METASTASES TO CENTRAL NERVOUS SYSTEM
     Dosage: SEE IMAGE, PO
     Route: 048
     Dates: start: 20060906
  4. TEMODAR [Suspect]
     Indication: NON-SMALL CELL LUNG CANCER
     Dosage: SEE IMAGE, PO
     Route: 048
     Dates: start: 20060906
  5. RADIATION THERAPY [Concomitant]

REACTIONS (6)
  - FATIGUE [None]
  - HYPOKALAEMIA [None]
  - LUNG INFILTRATION [None]
  - NAUSEA [None]
  - PNEUMONITIS [None]
  - VOMITING [None]
